FAERS Safety Report 7575457-8 (Version None)
Quarter: 2011Q2

REPORT INFORMATION
  Report Type: 
  Country: None (occurrence: None)
  Receive Date: 20110627
  Receipt Date: 20110617
  Transmission Date: 20111010
  Serious: Yes (Other)
  Sender: FDA-Public Use
  Company Number: IE-NAPPMUNDI-GBR-2011-0008408

PATIENT
  Sex: Female

DRUGS (2)
  1. FLOXACILLIN SODIUM [Interacting]
  2. BUTRANS 5MG TRANSDERMAL PATCH [Suspect]
     Indication: PRODUCT USED FOR UNKNOWN INDICATION
     Dosage: 5 MCG, Q1H
     Route: 062

REACTIONS (3)
  - DRUG INTERACTION [None]
  - CONFUSIONAL STATE [None]
  - INCOHERENT [None]
